FAERS Safety Report 24304128 (Version 3)
Quarter: 2025Q3

REPORT INFORMATION
  Report Type: Report from Study
  Country: KR (occurrence: KR)
  Receive Date: 20240910
  Receipt Date: 20250709
  Transmission Date: 20251021
  Serious: Yes (Other)
  Sender: ASTELLAS
  Company Number: KR-ASTELLAS-2024-AER-003562

PATIENT
  Age: 71 Year
  Sex: Female

DRUGS (11)
  1. GILTERITINIB [Suspect]
     Active Substance: GILTERITINIB
     Indication: Acute myeloid leukaemia recurrent
     Route: 048
     Dates: start: 20231104, end: 20231228
  2. GILTERITINIB [Suspect]
     Active Substance: GILTERITINIB
     Indication: Acute myeloid leukaemia refractory
  3. GILTERITINIB [Suspect]
     Active Substance: GILTERITINIB
     Indication: FLT3 gene mutation
  4. ALVOGEN CARVEDILOL [Concomitant]
     Indication: Hypertension
     Dosage: ONGOING
     Route: 048
     Dates: start: 20220420
  5. DAEWOONG ROSUVASTATIN [Concomitant]
     Indication: Dyslipidaemia
     Route: 048
     Dates: start: 20230909, end: 20231214
  6. PANTOPRAZOLE SODIUM [Concomitant]
     Active Substance: PANTOPRAZOLE SODIUM
     Indication: Prophylaxis
     Dosage: ONGOING
     Route: 048
     Dates: start: 20230904
  7. CHOLINE ALFOSCERATE [Concomitant]
     Active Substance: CHOLINE ALFOSCERATE
     Indication: Affective disorder
     Route: 048
     Dates: start: 20230907, end: 20231214
  8. MESTINON [Concomitant]
     Active Substance: PYRIDOSTIGMINE BROMIDE
     Indication: Myasthenia gravis
     Dosage: ONGOING
     Route: 048
     Dates: start: 20200603
  9. Aronamin C Plus Mini [Concomitant]
     Indication: Vitamin supplementation
     Dosage: ONGOING
     Route: 048
     Dates: start: 20231104
  10. TELMISARTAN [Concomitant]
     Active Substance: TELMISARTAN
     Indication: Hypertension
     Route: 048
     Dates: start: 20231102, end: 20231214
  11. NIFEDIPINE [Concomitant]
     Active Substance: NIFEDIPINE
     Indication: Hypertension
     Route: 048
     Dates: start: 20231108, end: 20231214

REACTIONS (3)
  - Hypokalaemia [Recovered/Resolved]
  - Diarrhoea [Recovered/Resolved]
  - Cellulitis [Recovering/Resolving]

NARRATIVE: CASE EVENT DATE: 20240103
